FAERS Safety Report 9783285 (Version 2)
Quarter: 2014Q2

REPORT INFORMATION
  Report Type: Spontaneous
  Country: JP (occurrence: JP)
  Receive Date: 20131226
  Receipt Date: 20140529
  Transmission Date: 20141212
  Serious: Yes (Other)
  Sender: FDA-Public Use
  Company Number: JP-ASTELLAS-2013US013316

PATIENT
  Age: 68 Year
  Sex: Male

DRUGS (3)
  1. TARCEVA [Suspect]
     Indication: SQUAMOUS CELL CARCINOMA OF LUNG
     Route: 048
  2. TARCEVA [Suspect]
     Route: 048
  3. TARCEVA [Suspect]
     Route: 048

REACTIONS (2)
  - Henoch-Schonlein purpura [Unknown]
  - Rash [Recovered/Resolved]
